FAERS Safety Report 5139727-5 (Version None)
Quarter: 2006Q4

REPORT INFORMATION
  Report Type: 
  Country: None (occurrence: None)
  Receive Date: 20061024
  Receipt Date: 20061006
  Transmission Date: 20070319
  Serious: Yes (Other)
  Sender: FDA-Public Use
  Company Number: 231453

PATIENT
  Age: 44 Year
  Sex: Female
  Weight: 82 kg

DRUGS (9)
  1. HERCEPTIN [Suspect]
     Indication: BREAST CANCER
     Dosage: INTRAVENOUS
     Route: 042
  2. ANASTROZOLE [Concomitant]
  3. BECLOMETHASONE DIPROPIONATE [Concomitant]
  4. CIPROFLOXACIN [Concomitant]
  5. DIAZEPAM [Concomitant]
  6. GOSERELIN (GOSERELIN) [Concomitant]
  7. SALBUTAMOL (ALBUTEROL/ALBUTEROL SULFATE) [Concomitant]
  8. SULFASALAZINE [Concomitant]
  9. CITALOPRAM HYDROBROMIDE [Concomitant]

REACTIONS (2)
  - COLITIS ULCERATIVE [None]
  - POLYP [None]
